FAERS Safety Report 8905758 (Version 1)
Quarter: 2012Q4

REPORT INFORMATION
  Report Type: 
  Country: BR (occurrence: BR)
  Receive Date: 20121109
  Receipt Date: 20121109
  Transmission Date: 20130627
  Serious: Yes (Hospitalization)
  Sender: FDA-Public Use
  Company Number: BR-ASTRAZENECA-2012SE29560

PATIENT
  Age: 67 Year
  Sex: Male

DRUGS (6)
  1. NEXIUM [Suspect]
     Indication: GASTRITIS PROPHYLAXIS
     Route: 048
     Dates: start: 2002
  2. NEXIUM [Suspect]
     Indication: GASTRITIS PROPHYLAXIS
     Route: 048
     Dates: start: 2002
  3. CENTRUM [Concomitant]
     Indication: HYPOVITAMINOSIS
  4. DESALEX [Concomitant]
     Indication: HOUSE DUST ALLERGY
  5. METAMUCIL [Concomitant]
  6. CLOZAP [Concomitant]

REACTIONS (2)
  - Coronary artery occlusion [Recovered/Resolved]
  - Malaise [Unknown]
